FAERS Safety Report 4917329-0 (Version None)
Quarter: 2006Q1

REPORT INFORMATION
  Report Type: 
  Country: None (occurrence: None)
  Receive Date: 20060215
  Receipt Date: 20060203
  Transmission Date: 20060701
  Serious: Yes (Other)
  Sender: FDA-Public Use
  Company Number: 2006018843

PATIENT
  Sex: 0

DRUGS (2)
  1. NORVASC [Suspect]
     Indication: ILL-DEFINED DISORDER
  2. BIAXIN [Suspect]
     Indication: ILL-DEFINED DISORDER

REACTIONS (2)
  - ADVERSE DRUG REACTION [None]
  - MUSCULAR WEAKNESS [None]
